FAERS Safety Report 8314797-1 (Version None)
Quarter: 2012Q2

REPORT INFORMATION
  Report Type: 
  Country: None (occurrence: None)
  Receive Date: 20120426
  Receipt Date: 20120423
  Transmission Date: 20120825
  Serious: Yes (Hospitalization, Other)
  Sender: FDA-Public Use
  Company Number: PHEH2012US004067

PATIENT
  Sex: Female

DRUGS (5)
  1. ALBUTEROL [Concomitant]
     Indication: ASTHMA
  2. SYNTHROID [Concomitant]
     Indication: BASEDOW'S DISEASE
     Dosage: 0.88 MG, QD
     Dates: start: 19950101
  3. PRILOSEC [Concomitant]
     Indication: GASTROOESOPHAGEAL REFLUX DISEASE
     Dosage: 20 MG, QD
     Dates: start: 20060101
  4. GILENYA [Suspect]
     Indication: RELAPSING-REMITTING MULTIPLE SCLEROSIS
     Dosage: 0.5 MG, QD
     Route: 048
     Dates: start: 20120124, end: 20120214
  5. RHINOCORT [Concomitant]
     Route: 045
     Dates: start: 20060101

REACTIONS (11)
  - HEART RATE INCREASED [None]
  - ELECTROCARDIOGRAM T WAVE ABNORMAL [None]
  - ATRIAL FIBRILLATION [None]
  - ARRHYTHMIA [None]
  - SINUS BRADYCARDIA [None]
  - ELECTROCARDIOGRAM POOR R-WAVE PROGRESSION [None]
  - BLOOD THYROID STIMULATING HORMONE INCREASED [None]
  - HYPOAESTHESIA [None]
  - MULTIPLE SCLEROSIS RELAPSE [None]
  - PALPITATIONS [None]
  - NEUTROPHIL PERCENTAGE INCREASED [None]
